FAERS Safety Report 10161654 (Version 1)
Quarter: 2014Q2

REPORT INFORMATION
  Report Type: Spontaneous
  Country: US (occurrence: None)
  Receive Date: 20140508
  Receipt Date: 20140508
  Transmission Date: 20141212
  Serious: Yes (Hospitalization)
  Sender: FDA-Public Use
  Company Number: None

PATIENT
  Age: 20 Year
  Sex: Male
  Weight: 88 kg

DRUGS (1)
  1. PRIVIGEN [Suspect]
     Indication: SELECTIVE IGG SUBCLASS DEFICIENCY
     Route: 042
     Dates: start: 20140424

REACTIONS (3)
  - Meningitis aseptic [None]
  - Incorrect drug administration duration [None]
  - Incorrect drug administration rate [None]
